FAERS Safety Report 17336248 (Version 1)
Quarter: 2020Q1

REPORT INFORMATION
  Report Type: Report from Study
  Country: US (occurrence: US)
  Receive Date: 20200128
  Receipt Date: 20200128
  Transmission Date: 20200409
  Serious: Yes (Other)
  Sender: FDA-Public Use
  Company Number: US-GILEAD-2020-0448350

PATIENT
  Age: 42 Year
  Sex: Male

DRUGS (2)
  1. AMBRISENTAN [Suspect]
     Active Substance: AMBRISENTAN
     Indication: PRODUCT USED FOR UNKNOWN INDICATION
     Dosage: 10 MG, QD
     Route: 048
     Dates: start: 20180322
  2. UPTRAVI [Concomitant]
     Active Substance: SELEXIPAG

REACTIONS (10)
  - Nocturnal dyspnoea [Unknown]
  - Oedema peripheral [Unknown]
  - Exercise tolerance decreased [Unknown]
  - Dyspnoea exertional [Not Recovered/Not Resolved]
  - Fatigue [Unknown]
  - Syncope [Unknown]
  - Paranasal sinus hypersecretion [Unknown]
  - Haematochezia [Unknown]
  - Cough [Unknown]
  - Dizziness [Unknown]
